FAERS Safety Report 8454432-5 (Version None)
Quarter: 2012Q2

REPORT INFORMATION
  Report Type: 
  Country: None (occurrence: None)
  Receive Date: 20120621
  Receipt Date: 20120613
  Transmission Date: 20120825
  Serious: No
  Sender: FDA-Public Use
  Company Number: US-BIOGENIDEC-2012BI017370

PATIENT
  Age: 57 Year
  Sex: Female

DRUGS (1)
  1. TYSABRI [Suspect]
     Indication: MULTIPLE SCLEROSIS
     Route: 042
     Dates: start: 20070529

REACTIONS (11)
  - DEPRESSION [None]
  - CONSTIPATION [None]
  - VISUAL IMPAIRMENT [None]
  - FALL [None]
  - MUSCULAR WEAKNESS [None]
  - FEELING ABNORMAL [None]
  - DIARRHOEA [None]
  - ASTHENIA [None]
  - ALTERED STATE OF CONSCIOUSNESS [None]
  - DYSPEPSIA [None]
  - SYNCOPE [None]
